FAERS Safety Report 6736334-5 (Version None)
Quarter: 2010Q2

REPORT INFORMATION
  Report Type: 
  Country: None (occurrence: None)
  Receive Date: 20100521
  Receipt Date: 20100311
  Transmission Date: 20101027
  Serious: No
  Sender: FDA-Public Use
  Company Number: US-BAYER-201016482NA

PATIENT
  Age: 73 Year
  Sex: Male

DRUGS (2)
  1. SOTALOL HCL [Suspect]
     Indication: DRUG USE FOR UNKNOWN INDICATION
  2. COUMADIN [Concomitant]

REACTIONS (2)
  - HEART RATE DECREASED [None]
  - SOMNOLENCE [None]
